FAERS Safety Report 20946974 (Version 1)
Quarter: 2022Q2

REPORT INFORMATION
  Report Type: Spontaneous
  Country: PL (occurrence: PL)
  Receive Date: 20220610
  Receipt Date: 20220610
  Transmission Date: 20220721
  Serious: Yes (Hospitalization, Other)
  Sender: FDA-Public Use
  Company Number: PL-BRISTOL-MYERS SQUIBB COMPANY-2022-050988

PATIENT
  Age: 50 Year
  Sex: Male

DRUGS (4)
  1. AZACITIDINE [Suspect]
     Active Substance: AZACITIDINE
     Indication: Acute myeloid leukaemia
     Dosage: DOSE : NOT PROVIDED;     FREQ : NOT PROVIDED?2ND CYCLE WITH AZACITIDINE
     Dates: start: 202203
  2. AZACITIDINE [Suspect]
     Active Substance: AZACITIDINE
     Dosage: 1ST CYCLE WITH AZACITIDINE
     Dates: start: 202202
  3. AZACITIDINE [Suspect]
     Active Substance: AZACITIDINE
     Dosage: AZACITIDINE + VENETOCLAX CYCLE
     Dates: start: 20220510
  4. VENETOCLAX [Concomitant]
     Active Substance: VENETOCLAX
     Indication: Acute myeloid leukaemia
     Dosage: AZACITIDINE + VENETOCLAX CYCLE
     Dates: start: 20220510

REACTIONS (7)
  - Asthenia [Unknown]
  - Cough [Unknown]
  - Pyrexia [Unknown]
  - Night sweats [Unknown]
  - Malignant neoplasm progression [Unknown]
  - Myelodysplastic syndrome [Unknown]
  - Product use issue [Unknown]

NARRATIVE: CASE EVENT DATE: 20220201
